FAERS Safety Report 8143161-3 (Version None)
Quarter: 2012Q1

REPORT INFORMATION
  Report Type: 
  Country: None (occurrence: None)
  Receive Date: 20120217
  Receipt Date: 20120213
  Transmission Date: 20120608
  Serious: No
  Sender: FDA-Public Use
  Company Number: US-PFIZER INC-2012039506

PATIENT
  Sex: Female

DRUGS (2)
  1. LYRICA [Suspect]
     Indication: PAIN
     Dosage: 50 MG, 1X/DAY AT BEDTIME
  2. LYRICA [Suspect]
     Dosage: 50 MG, 3X/DAY (FOR 30 DAYS)

REACTIONS (1)
  - FIBROMYALGIA [None]
